FAERS Safety Report 23213773 (Version 1)
Quarter: 2023Q4

REPORT INFORMATION
  Report Type: Spontaneous
  Country: SA (occurrence: SA)
  Receive Date: 20231121
  Receipt Date: 20231121
  Transmission Date: 20240109
  Serious: Yes (Other)
  Sender: FDA-Public Use
  Company Number: SA-STRIDES ARCOLAB LIMITED-2023SP017057

PATIENT
  Age: 58 Year
  Sex: Male

DRUGS (28)
  1. TENOFOVIR DISOPROXIL FUMARATE [Interacting]
     Active Substance: TENOFOVIR DISOPROXIL FUMARATE
     Indication: HIV infection
     Dosage: UNK
     Route: 065
     Dates: start: 2006, end: 2015
  2. TENOFOVIR DISOPROXIL FUMARATE [Interacting]
     Active Substance: TENOFOVIR DISOPROXIL FUMARATE
     Dosage: 300 MILLIGRAM PER DAY
     Route: 048
  3. LAMIVUDINE [Interacting]
     Active Substance: LAMIVUDINE
     Indication: HIV infection
     Dosage: UNK
     Route: 065
     Dates: start: 2006, end: 2015
  4. LAMIVUDINE [Interacting]
     Active Substance: LAMIVUDINE
     Dosage: 300 MILLIGRAM DAILY
     Route: 048
  5. MYCOPHENOLATE MOFETIL [Interacting]
     Active Substance: MYCOPHENOLATE MOFETIL
     Indication: Immunosuppression
     Dosage: 1000 MILLIGRAM, EVERY 12 HRS
     Route: 048
  6. MYCOPHENOLATE MOFETIL [Interacting]
     Active Substance: MYCOPHENOLATE MOFETIL
     Indication: Heart transplant
     Dosage: 250 MILLIGRAM, BID
     Route: 048
  7. TACROLIMUS [Interacting]
     Active Substance: TACROLIMUS
     Indication: Immunosuppression
     Dosage: UNK
     Route: 065
  8. TACROLIMUS [Interacting]
     Active Substance: TACROLIMUS
     Indication: Heart transplant
  9. PREDNISOLONE [Interacting]
     Active Substance: PREDNISOLONE
     Indication: Immunosuppression
     Dosage: UNK (TAPER TO OF)
     Route: 048
  10. PREDNISOLONE [Interacting]
     Active Substance: PREDNISOLONE
     Indication: Heart transplant
     Dosage: 50 MILLIGRAM, BID (FOR SIX DOSES)
     Route: 048
  11. PREDNISOLONE [Interacting]
     Active Substance: PREDNISOLONE
     Dosage: 5 MILLIGRAM PER DAY
     Route: 048
  12. NYSTATIN [Suspect]
     Active Substance: NYSTATIN
     Indication: Candida infection
     Dosage: 500000 UNITS (AFTER MEALS AND AND  BEFORE BEDTIME)
     Route: 048
  13. NYSTATIN [Suspect]
     Active Substance: NYSTATIN
     Indication: Prophylaxis
  14. EFAVIRENZ [Suspect]
     Active Substance: EFAVIRENZ
     Indication: Product used for unknown indication
     Dosage: UNK
     Route: 065
  15. METHYLPREDNISOLONE [Interacting]
     Active Substance: METHYLPREDNISOLONE
     Indication: Immunosuppression
     Dosage: 125 MILLIGRAM, EVERY 8 HOURS
     Route: 042
  16. METHYLPREDNISOLONE [Interacting]
     Active Substance: METHYLPREDNISOLONE
     Indication: Heart transplant
  17. DARUNAVIR [Interacting]
     Active Substance: DARUNAVIR
     Indication: HIV infection
     Dosage: UNK
     Route: 065
     Dates: start: 2006, end: 2015
  18. RITONAVIR [Interacting]
     Active Substance: RITONAVIR
     Indication: HIV infection
     Dosage: UNK
     Route: 065
     Dates: start: 2006, end: 2015
  19. RALTEGRAVIR [Interacting]
     Active Substance: RALTEGRAVIR
     Indication: HIV infection
     Dosage: 400 MILLIGRAM, BID
     Route: 048
  20. RILPIVIRINE [Interacting]
     Active Substance: RILPIVIRINE
     Indication: HIV infection
     Dosage: 25 MILLIGRAM PER DAY
     Route: 048
  21. ATAZANAVIR [Suspect]
     Active Substance: ATAZANAVIR
     Indication: Product used for unknown indication
     Dosage: UNK
     Route: 065
  22. ZIDOVUDINE [Interacting]
     Active Substance: ZIDOVUDINE
     Indication: HIV infection
     Dosage: UNK
     Route: 065
     Dates: start: 1985, end: 2015
  23. ZIDOVUDINE [Interacting]
     Active Substance: ZIDOVUDINE
     Dosage: UNK
     Route: 065
     Dates: start: 2006, end: 2015
  24. MILRINONE [Concomitant]
     Active Substance: MILRINONE
     Indication: Product used for unknown indication
     Dosage: 0.375 MCG/KG
     Route: 065
  25. DOBUTAMINE [Concomitant]
     Active Substance: DOBUTAMINE HYDROCHLORIDE
     Indication: Product used for unknown indication
     Dosage: 1 MCG/KG PER MINUTE
     Route: 065
  26. GANCICLOVIR [Concomitant]
     Active Substance: GANCICLOVIR
     Indication: Product used for unknown indication
     Dosage: 2.5 MG/KG, EVERY 12 HRS
     Route: 042
  27. VALGANCICLOVIR [Concomitant]
     Active Substance: VALGANCICLOVIR
     Indication: Antiviral prophylaxis
     Dosage: 900 MILLIGRAM PER DAY
     Route: 048
  28. SULFAMETHOXAZOLE\TRIMETHOPRIM [Concomitant]
     Active Substance: SULFAMETHOXAZOLE\TRIMETHOPRIM
     Indication: Antifungal prophylaxis
     Dosage: UNK, SINGLE PER DAY
     Route: 048

REACTIONS (4)
  - Drug interaction [Unknown]
  - Therapy non-responder [Unknown]
  - Transplant rejection [Unknown]
  - Rash [Unknown]
